FAERS Safety Report 25824236 (Version 1)
Quarter: 2025Q3

REPORT INFORMATION
  Report Type: Spontaneous
  Country: JP (occurrence: JP)
  Receive Date: 20250919
  Receipt Date: 20250919
  Transmission Date: 20251020
  Serious: Yes (Other)
  Sender: MERCK SHARP & DOHME LLC
  Company Number: JP-009507513-2330176

PATIENT
  Age: 77 Year
  Sex: Female

DRUGS (4)
  1. LAGEVRIO [Suspect]
     Active Substance: MOLNUPIRAVIR
     Indication: COVID-19 treatment
     Route: 048
     Dates: start: 20250820, end: 20250820
  2. PREDNISOLONE [Concomitant]
     Active Substance: PREDNISOLONE
  3. MEMANTINE [Concomitant]
     Active Substance: MEMANTINE
  4. CILOSTAZOL [Concomitant]
     Active Substance: CILOSTAZOL

REACTIONS (1)
  - Drug eruption [Recovering/Resolving]

NARRATIVE: CASE EVENT DATE: 20250820
